FAERS Safety Report 4372107-9 (Version None)
Quarter: 2004Q2

REPORT INFORMATION
  Report Type: 
  Country: None (occurrence: None)
  Receive Date: 20040607
  Receipt Date: 20030130
  Transmission Date: 20050107
  Serious: Yes (Hospitalization, Disabling)
  Sender: FDA-Public Use
  Company Number: US-MERCK-0302USA00005

PATIENT
  Age: 63 Year
  Sex: Female
  Weight: 94 kg

DRUGS (12)
  1. HEPARIN [Concomitant]
     Indication: CARDIAC DISORDER
     Route: 065
     Dates: start: 19950501
  2. HYDRO-CHLOR [Concomitant]
     Indication: MYALGIA
     Route: 065
     Dates: start: 20000101
  3. INSULIN [Concomitant]
     Indication: DIABETES MELLITUS
     Route: 065
     Dates: start: 20000101
  4. MS CONTIN [Concomitant]
     Indication: PAIN
     Route: 065
     Dates: start: 20000101
  5. VIOXX [Suspect]
     Indication: ARTHRALGIA
     Route: 048
     Dates: start: 20000101, end: 20000101
  6. VICODIN [Concomitant]
     Indication: PAIN
     Route: 065
     Dates: start: 20000101
  7. XANAX [Concomitant]
     Indication: NERVOUSNESS
     Route: 065
     Dates: start: 20000101
  8. ELAVIL [Concomitant]
     Route: 048
  9. ASPIRIN [Concomitant]
     Indication: PAIN
     Route: 065
  10. ASPIRIN [Concomitant]
     Indication: OSTEOARTHRITIS
     Route: 065
  11. LOTENSIN [Concomitant]
     Route: 065
     Dates: start: 19930101, end: 20000101
  12. CAPTOPRIL [Concomitant]
     Indication: BLOOD PRESSURE
     Route: 065
     Dates: start: 20000101

REACTIONS (25)
  - ANGINA PECTORIS [None]
  - ARTHRITIS [None]
  - CONDITION AGGRAVATED [None]
  - CONNECTIVE TISSUE DISORDER [None]
  - DEPRESSION [None]
  - DIABETES MELLITUS [None]
  - DIABETIC NEUROPATHY [None]
  - DIZZINESS [None]
  - DRUG INEFFECTIVE [None]
  - FALL [None]
  - FIBROMYALGIA [None]
  - GENERALISED ANXIETY DISORDER [None]
  - HAEMATOCHEZIA [None]
  - HYPERTENSION [None]
  - INJURY [None]
  - INTESTINAL OBSTRUCTION [None]
  - JOINT LOCK [None]
  - MALAISE [None]
  - NERVOUSNESS [None]
  - OSTEOARTHRITIS [None]
  - PAIN [None]
  - STOMACH DISCOMFORT [None]
  - THROMBOCYTOPENIA [None]
  - TREMOR [None]
  - VOMITING [None]
